FAERS Safety Report 10882885 (Version 3)
Quarter: 2015Q2

REPORT INFORMATION
  Report Type: Spontaneous
  Country: US (occurrence: US)
  Receive Date: 20150303
  Receipt Date: 20150505
  Transmission Date: 20150821
  Serious: No
  Sender: FDA-Public Use
  Company Number: US-PFIZER INC-2015076542

PATIENT
  Age: 57 Year
  Sex: Female

DRUGS (2)
  1. XELJANZ [Suspect]
     Active Substance: TOFACITINIB CITRATE
     Indication: RHEUMATOID ARTHRITIS
     Dosage: 5 MG (1 TABLET), 2X/DAY
     Route: 048
     Dates: start: 20150203
  2. XELJANZ [Suspect]
     Active Substance: TOFACITINIB CITRATE
     Dosage: 5 MG, 2X/DAY
     Dates: start: 20150203

REACTIONS (8)
  - Fatigue [Unknown]
  - Faeces soft [Not Recovered/Not Resolved]
  - Blood cholesterol increased [Unknown]
  - Drug dose omission [Unknown]
  - Frequent bowel movements [Not Recovered/Not Resolved]
  - Weight increased [Unknown]
  - Abdominal pain upper [Not Recovered/Not Resolved]
  - Sensitivity of teeth [Unknown]

NARRATIVE: CASE EVENT DATE: 201502
